FAERS Safety Report 19897403 (Version 2)
Quarter: 2022Q1

REPORT INFORMATION
  Report Type: Spontaneous
  Country: CA (occurrence: CA)
  Receive Date: 20210930
  Receipt Date: 20220321
  Transmission Date: 20220423
  Serious: Yes (Other)
  Sender: FDA-Public Use
  Company Number: CA-SA-SAC20210927000195

PATIENT
  Age: 63 Year
  Sex: Female

DRUGS (9)
  1. RANITIDINE HYDROCHLORIDE [Suspect]
     Active Substance: RANITIDINE HYDROCHLORIDE
     Indication: Chronic spontaneous urticaria
     Dosage: 150 MG, BID
     Route: 048
     Dates: start: 20210223
  2. RANITIDINE HYDROCHLORIDE [Suspect]
     Active Substance: RANITIDINE HYDROCHLORIDE
     Indication: Chronic spontaneous urticaria
     Dosage: UNK
  3. FENOFIBRATE [Suspect]
     Active Substance: FENOFIBRATE
     Indication: Blood triglycerides abnormal
     Dosage: 145 MG, QD
     Route: 048
     Dates: start: 2003
  4. MONTELUKAST SODIUM [Suspect]
     Active Substance: MONTELUKAST SODIUM
     Indication: Chronic spontaneous urticaria
     Dosage: 10 MG, QD
     Route: 048
     Dates: start: 20210223
  5. CLONAZEPAM [Concomitant]
     Active Substance: CLONAZEPAM
     Indication: Product used for unknown indication
     Dosage: 0.25 MG
     Dates: start: 20210319
  6. MONTELUKAST SODIUM [Concomitant]
     Active Substance: MONTELUKAST SODIUM
     Dosage: UNK
  7. FENOFIBRATE [Concomitant]
     Active Substance: FENOFIBRATE
     Dosage: UNK
  8. CORTISONE [Concomitant]
     Active Substance: CORTISONE
     Dosage: FOR  3 DAYS
     Dates: start: 20210602
  9. CORTISONE [Concomitant]
     Active Substance: CORTISONE
     Dosage: FOR 3 DAYS

REACTIONS (49)
  - Allergy to synthetic fabric [Unknown]
  - Arthralgia [Unknown]
  - Blood pressure increased [Unknown]
  - Contusion [Unknown]
  - Cyst [Unknown]
  - Depression [Unknown]
  - Dermatitis contact [Unknown]
  - Dysphonia [Unknown]
  - Erythema [Unknown]
  - General physical health deterioration [Unknown]
  - Hypersensitivity [Unknown]
  - Joint swelling [Unknown]
  - Lip swelling [Unknown]
  - Nodule [Unknown]
  - Pain [Unknown]
  - Papule [Unknown]
  - Pharyngeal swelling [Unknown]
  - Pruritus [Unknown]
  - Rash [Unknown]
  - Stress [Unknown]
  - Suicidal ideation [Unknown]
  - Swelling face [Unknown]
  - Urticaria [Unknown]
  - Drug ineffective [Unknown]
  - Off label use [Unknown]
  - Urticaria [Unknown]
  - Urticaria [Unknown]
  - Pruritus [Unknown]
  - Arthralgia [Unknown]
  - Hypersensitivity [Unknown]
  - Pain [Unknown]
  - Suicidal ideation [Unknown]
  - Joint swelling [Unknown]
  - Contusion [Unknown]
  - Allergy to synthetic fabric [Unknown]
  - Dermatitis contact [Unknown]
  - Depression [Unknown]
  - Erythema [Unknown]
  - Swelling face [Unknown]
  - Pharyngeal swelling [Unknown]
  - Rash [Unknown]
  - Papule [Unknown]
  - Lip swelling [Unknown]
  - Drug ineffective [Unknown]
  - Nodule [Unknown]
  - Blood pressure increased [Unknown]
  - Dysphonia [Unknown]
  - Cyst [Unknown]
  - Thermal burn [Unknown]

NARRATIVE: CASE EVENT DATE: 20210201
